FAERS Safety Report 9119381 (Version 1)
Quarter: 2013Q1

REPORT INFORMATION
  Report Type: Spontaneous
  Country: US (occurrence: US)
  Receive Date: 20130207
  Receipt Date: 20130207
  Transmission Date: 20140127
  Serious: No
  Sender: FDA-Public Use
  Company Number: US-TEVA-384986USA

PATIENT
  Sex: Female

DRUGS (1)
  1. NUVIGIL [Suspect]

REACTIONS (2)
  - Nausea [Unknown]
  - Drug ineffective [Unknown]
